FAERS Safety Report 15264479 (Version 1)
Quarter: 2018Q3

REPORT INFORMATION
  Report Type: Spontaneous
  Country: US (occurrence: US)
  Receive Date: 20180722
  Receipt Date: 20180722
  Transmission Date: 20181010
  Serious: No
  Sender: FDA-Public Use
  Company Number: None

PATIENT
  Age: 74 Year
  Sex: Female
  Weight: 56.02 kg

DRUGS (9)
  1. LYSINE [Concomitant]
     Active Substance: LYSINE
  2. AMITRIPTYLINE HYDROCHLORIDE. [Suspect]
     Active Substance: AMITRIPTYLINE HYDROCHLORIDE
     Indication: ANXIETY
     Dosage: ?          QUANTITY:1 DF DOSAGE FORM;?
     Route: 048
     Dates: start: 20180628, end: 20180717
  3. PROLINE [Concomitant]
     Active Substance: PROLINE
  4. BABY ASPIRIN [Concomitant]
     Active Substance: ASPIRIN
  5. VERAPAMIL HCL [Concomitant]
     Active Substance: VERAPAMIL HYDROCHLORIDE
  6. DIAZEPAM. [Concomitant]
     Active Substance: DIAZEPAM
  7. SEAKELP [Concomitant]
  8. LEVOTHYROXIN [Concomitant]
     Active Substance: LEVOTHYROXINE
  9. HEART PLUS VIT C W/ROSE HIPS [Concomitant]

REACTIONS (13)
  - Headache [None]
  - Dizziness [None]
  - Chest discomfort [None]
  - Balance disorder [None]
  - Disturbance in attention [None]
  - Heart rate increased [None]
  - Visual impairment [None]
  - Decreased appetite [None]
  - Fatigue [None]
  - Asthenia [None]
  - Tremor [None]
  - Dry mouth [None]
  - Hypertension [None]

NARRATIVE: CASE EVENT DATE: 20180630
